FAERS Safety Report 16338375 (Version 5)
Quarter: 2020Q1

REPORT INFORMATION
  Report Type: Report from Study
  Country: US (occurrence: US)
  Receive Date: 20190521
  Receipt Date: 20200319
  Transmission Date: 20200409
  Serious: Yes (Hospitalization)
  Sender: FDA-Public Use
  Company Number: US-ROCHE-2319245

PATIENT
  Age: 80 Year
  Sex: Female
  Weight: 57.2 kg

DRUGS (74)
  1. ATIVAN [Concomitant]
     Active Substance: LORAZEPAM
     Route: 065
     Dates: start: 20190429, end: 20190429
  2. SODIUM CHLORIDE 0.9% [Concomitant]
     Active Substance: SODIUM CHLORIDE
     Route: 040
     Dates: start: 20190503, end: 20190503
  3. OFIRMEV [Concomitant]
     Active Substance: ACETAMINOPHEN
     Route: 065
     Dates: start: 20190429, end: 20190505
  4. MAGNESIUM SULFATE. [Concomitant]
     Active Substance: MAGNESIUM SULFATE
     Route: 065
     Dates: start: 20190502, end: 20190502
  5. HEPARIN FLUSH [Concomitant]
     Active Substance: HEPARIN SODIUM
     Dosage: CENTRAL LINE PER PROTOCOL
     Route: 065
     Dates: start: 20190218
  6. MORPHINE [Concomitant]
     Active Substance: MORPHINE
     Indication: ABDOMINAL PAIN
     Route: 065
     Dates: start: 20190425, end: 20190428
  7. SODIUM CHLORIDE 0.9% [Concomitant]
     Active Substance: SODIUM CHLORIDE
     Route: 065
     Dates: start: 20190430, end: 20190430
  8. PEPCID [Concomitant]
     Active Substance: FAMOTIDINE
     Route: 065
     Dates: start: 20190504, end: 20190504
  9. MAGNESIUM SULFATE. [Concomitant]
     Active Substance: MAGNESIUM SULFATE
     Route: 065
     Dates: start: 20190503, end: 20190503
  10. POTASSIUM CHLORIDE. [Concomitant]
     Active Substance: POTASSIUM CHLORIDE
     Route: 065
     Dates: start: 20190430, end: 20190430
  11. PROCHLORPERAZINE EDISYLATE. [Concomitant]
     Active Substance: PROCHLORPERAZINE EDISYLATE
     Indication: VOMITING
     Route: 065
     Dates: start: 20190503, end: 20190504
  12. REGLAN [Concomitant]
     Active Substance: METOCLOPRAMIDE HYDROCHLORIDE
     Indication: VOMITING
     Route: 065
     Dates: start: 20190426
  13. ATIVAN [Concomitant]
     Active Substance: LORAZEPAM
     Indication: NAUSEA
     Route: 065
     Dates: start: 20190219
  14. ATIVAN [Concomitant]
     Active Substance: LORAZEPAM
     Indication: VOMITING
     Route: 065
     Dates: start: 20190426, end: 20190426
  15. ATIVAN [Concomitant]
     Active Substance: LORAZEPAM
     Route: 065
     Dates: start: 20190429, end: 20190429
  16. ATIVAN [Concomitant]
     Active Substance: LORAZEPAM
     Route: 065
     Dates: start: 20190503, end: 20190505
  17. LOVENOX [Concomitant]
     Active Substance: ENOXAPARIN SODIUM
     Indication: PROPHYLAXIS
     Route: 065
     Dates: start: 20190425, end: 20190429
  18. LOVENOX [Concomitant]
     Active Substance: ENOXAPARIN SODIUM
     Route: 065
     Dates: start: 20190501, end: 20190501
  19. SODIUM CHLORIDE 0.9% [Concomitant]
     Active Substance: SODIUM CHLORIDE
     Route: 040
     Dates: start: 20190502, end: 20190502
  20. ANTACIDS, OTHER COMBINATIONS [Concomitant]
     Active Substance: ANTACIDS NOS
     Indication: GASTROOESOPHAGEAL REFLUX DISEASE
     Route: 065
     Dates: start: 20190426, end: 20190426
  21. PEPCID [Concomitant]
     Active Substance: FAMOTIDINE
     Indication: GASTROOESOPHAGEAL REFLUX DISEASE
     Route: 065
     Dates: start: 20190429, end: 20190503
  22. POTASSIUM CHLORIDE. [Concomitant]
     Active Substance: POTASSIUM CHLORIDE
     Indication: HYPOKALAEMIA
     Route: 065
     Dates: start: 20190429, end: 20190430
  23. TRANSDERM SCOP [Concomitant]
     Active Substance: SCOPOLAMINE
     Indication: VOMITING
  24. ATEZOLIZUMAB. [Suspect]
     Active Substance: ATEZOLIZUMAB
     Indication: MALIGNANT PERITONEAL NEOPLASM
     Dosage: MOST RECENT DOSE OF BLINDED ATEZOLIZUMAB: 09/APR/2019
     Route: 042
     Dates: start: 20190108
  25. LIPITOR [Concomitant]
     Active Substance: ATORVASTATIN CALCIUM
     Indication: HYPERLIPIDAEMIA
     Route: 065
     Dates: start: 20170824
  26. BACLOFEN. [Concomitant]
     Active Substance: BACLOFEN
     Indication: ARTHRITIS
     Route: 065
     Dates: start: 20091209
  27. REGLAN [Concomitant]
     Active Substance: METOCLOPRAMIDE HYDROCHLORIDE
     Route: 065
     Dates: start: 20190503, end: 20190503
  28. ROCEPHIN [Concomitant]
     Active Substance: CEFTRIAXONE SODIUM
     Indication: URINARY TRACT INFECTION
     Route: 065
     Dates: start: 20190425, end: 20190425
  29. ROCEPHIN [Concomitant]
     Active Substance: CEFTRIAXONE SODIUM
     Route: 065
     Dates: start: 20190426, end: 20190429
  30. MORPHINE [Concomitant]
     Active Substance: MORPHINE
     Route: 065
     Dates: start: 20190427, end: 20190427
  31. SODIUM CHLORIDE 0.9% [Concomitant]
     Active Substance: SODIUM CHLORIDE
     Indication: PROPHYLAXIS
     Route: 040
     Dates: start: 20190425, end: 20190425
  32. SODIUM CHLORIDE 0.9% [Concomitant]
     Active Substance: SODIUM CHLORIDE
     Route: 065
     Dates: start: 20190504, end: 20190505
  33. OFIRMEV [Concomitant]
     Active Substance: ACETAMINOPHEN
     Route: 065
     Dates: start: 20190428, end: 20190428
  34. KCL [Concomitant]
     Active Substance: POTASSIUM CHLORIDE
     Indication: HYPONATRAEMIA
     Route: 065
     Dates: start: 20190426, end: 20190428
  35. ANTACIDS, OTHER COMBINATIONS [Concomitant]
     Active Substance: ANTACIDS NOS
     Route: 065
     Dates: start: 20190502, end: 20190502
  36. PEPTO-BISMOL [Concomitant]
     Active Substance: BISMUTH SUBSALICYLATE
     Route: 065
     Dates: start: 20190428, end: 20190429
  37. COLACE [Concomitant]
     Active Substance: DOCUSATE SODIUM
     Indication: SMALL INTESTINAL OBSTRUCTION
  38. MAGNESIUM SULFATE. [Concomitant]
     Active Substance: MAGNESIUM SULFATE
     Route: 065
     Dates: start: 20190430, end: 20190430
  39. MAGNESIUM SULFATE. [Concomitant]
     Active Substance: MAGNESIUM SULFATE
     Route: 065
     Dates: start: 20190504, end: 20190504
  40. POTASSIUM CHLORIDE. [Concomitant]
     Active Substance: POTASSIUM CHLORIDE
     Route: 065
     Dates: start: 20190505, end: 20190505
  41. REGLAN [Concomitant]
     Active Substance: METOCLOPRAMIDE HYDROCHLORIDE
     Indication: NAUSEA
     Route: 065
     Dates: start: 20190118
  42. LOVENOX [Concomitant]
     Active Substance: ENOXAPARIN SODIUM
     Route: 065
     Dates: start: 20190503, end: 20190505
  43. COLACE [Concomitant]
     Active Substance: DOCUSATE SODIUM
     Indication: CONSTIPATION
     Route: 065
     Dates: start: 20190427, end: 20190427
  44. CONTACT LAXATIVES [Concomitant]
     Active Substance: UNSPECIFIED INGREDIENT
     Indication: CONSTIPATION
     Route: 065
     Dates: start: 20190428, end: 20190428
  45. LACTULOSE. [Concomitant]
     Active Substance: LACTULOSE
     Indication: CONSTIPATION
     Route: 048
     Dates: start: 20190428, end: 20190428
  46. LACTULOSE. [Concomitant]
     Active Substance: LACTULOSE
     Indication: SMALL INTESTINAL OBSTRUCTION
  47. CEPACOL SORE THROAT [BENZOCAINE;MENTHOL] [Concomitant]
     Route: 065
     Dates: start: 20190503, end: 20190503
  48. PACLITAXEL. [Suspect]
     Active Substance: PACLITAXEL
     Indication: MALIGNANT PERITONEAL NEOPLASM
     Dosage: MOST RECENT DOSE OF PACLITAXEL (280 MG ONCE PER 3 WEEKS): 09/APR/2019
     Route: 042
     Dates: start: 20190108
  49. NEURONTIN [Concomitant]
     Active Substance: GABAPENTIN
     Indication: POST HERPETIC NEURALGIA
     Dosage: POSTHERPETIC NEURALGIA PAIN
     Route: 065
     Dates: start: 20180615
  50. TYLENOL [Concomitant]
     Active Substance: ACETAMINOPHEN
     Indication: ARTHRALGIA
     Dosage: EXTRA STRENGTH
     Route: 065
  51. MARIJUANA [Concomitant]
     Active Substance: CANNABIS SATIVA SUBSP. INDICA TOP
     Dosage: EDIBLE
     Route: 065
     Dates: start: 20190110
  52. MAGNESIUM SULFATE. [Concomitant]
     Active Substance: MAGNESIUM SULFATE
     Route: 065
     Dates: start: 20190501, end: 20190501
  53. TRANSDERM SCOP [Concomitant]
     Active Substance: SCOPOLAMINE
     Indication: NAUSEA
     Route: 065
     Dates: start: 20190429, end: 20190505
  54. LACTATED RINGERS SOLUTION [Concomitant]
     Active Substance: CALCIUM CHLORIDE\POTASSIUM CHLORIDE\SODIUM CHLORIDE\SODIUM LACTATE
     Indication: SMALL INTESTINAL OBSTRUCTION
     Route: 040
     Dates: start: 20190429, end: 20190429
  55. CARBOPLATIN. [Suspect]
     Active Substance: CARBOPLATIN
     Indication: MALIGNANT PERITONEAL NEOPLASM
     Dosage: AT A DOSE TO ACHIEVE A TARGET AREA UNDER THE CURVE (AUC) OF 6 MILLIGRAMS PER MILLILITER*MINUTE (MG/M
     Route: 042
     Dates: start: 20190108
  56. TYLENOL [Concomitant]
     Active Substance: ACETAMINOPHEN
     Indication: ABDOMINAL PAIN
     Route: 065
     Dates: start: 20190504, end: 20190507
  57. ZOFRAN [Concomitant]
     Active Substance: ONDANSETRON HYDROCHLORIDE
     Indication: NAUSEA
     Route: 065
     Dates: start: 20190425, end: 20190425
  58. OFIRMEV [Concomitant]
     Active Substance: ACETAMINOPHEN
     Indication: ABDOMINAL PAIN
     Route: 065
     Dates: start: 20190426, end: 20190426
  59. OFIRMEV [Concomitant]
     Active Substance: ACETAMINOPHEN
     Route: 065
     Dates: start: 20190428, end: 20190428
  60. KCL [Concomitant]
     Active Substance: POTASSIUM CHLORIDE
     Route: 065
     Dates: start: 20190429, end: 20190503
  61. PEPTO-BISMOL [Concomitant]
     Active Substance: BISMUTH SUBSALICYLATE
     Indication: GASTROOESOPHAGEAL REFLUX DISEASE
     Route: 065
     Dates: start: 20190426, end: 20190427
  62. BEVACIZUMAB. [Suspect]
     Active Substance: BEVACIZUMAB
     Indication: MALIGNANT PERITONEAL NEOPLASM
     Dosage: MOST RECENT DOSE OF BEVACIZUMAB (895.5 MG ONCE PER 3 WEEKS): 09/APR/2019
     Route: 042
     Dates: start: 20190129
  63. LIPITOR [Concomitant]
     Active Substance: ATORVASTATIN CALCIUM
     Route: 065
     Dates: start: 20190514, end: 20190514
  64. REGLAN [Concomitant]
     Active Substance: METOCLOPRAMIDE HYDROCHLORIDE
     Route: 065
     Dates: start: 20190426, end: 20190426
  65. ATIVAN [Concomitant]
     Active Substance: LORAZEPAM
     Route: 065
     Dates: start: 20190513, end: 20190513
  66. MORPHINE [Concomitant]
     Active Substance: MORPHINE
     Route: 065
     Dates: start: 20190425, end: 20190425
  67. SODIUM CHLORIDE 0.9% [Concomitant]
     Active Substance: SODIUM CHLORIDE
     Route: 065
     Dates: start: 20190428, end: 20190428
  68. SODIUM CHLORIDE 0.9% [Concomitant]
     Active Substance: SODIUM CHLORIDE
     Route: 040
     Dates: start: 20190429, end: 20190429
  69. CONTACT LAXATIVES [Concomitant]
     Active Substance: UNSPECIFIED INGREDIENT
     Indication: SMALL INTESTINAL OBSTRUCTION
  70. MAGNESIUM SULFATE. [Concomitant]
     Active Substance: MAGNESIUM SULFATE
     Indication: HYPOMAGNESAEMIA
     Route: 065
     Dates: start: 20190429, end: 20190429
  71. CATAPRES [Concomitant]
     Active Substance: CLONIDINE HYDROCHLORIDE
     Indication: BLOOD PRESSURE SYSTOLIC
     Route: 065
     Dates: start: 20190430, end: 20190503
  72. CATAPRES [Concomitant]
     Active Substance: CLONIDINE HYDROCHLORIDE
     Route: 065
     Dates: start: 20190505, end: 20190505
  73. PROCHLORPERAZINE EDISYLATE. [Concomitant]
     Active Substance: PROCHLORPERAZINE EDISYLATE
     Indication: NAUSEA
     Route: 065
     Dates: start: 20190430, end: 20190430
  74. IMODIUM [Concomitant]
     Active Substance: LOPERAMIDE HYDROCHLORIDE
     Indication: DIARRHOEA
     Route: 065
     Dates: start: 20190407

REACTIONS (1)
  - Transient ischaemic attack [Recovered/Resolved]

NARRATIVE: CASE EVENT DATE: 20190513
